FAERS Safety Report 5507848-0 (Version None)
Quarter: 2007Q4

REPORT INFORMATION
  Report Type: 
  Country: None (occurrence: None)
  Receive Date: 20071101
  Receipt Date: 20070914
  Transmission Date: 20080405
  Serious: Yes (Other)
  Sender: FDA-Public Use
  Company Number: 2007EN000227

PATIENT
  Age: 52 Year
  Sex: Female
  Weight: 86.1834 kg

DRUGS (8)
  1. OPANA ER [Suspect]
     Indication: BACK PAIN
     Dosage: 10 MG;Q12H
     Dates: start: 20070813, end: 20070817
  2. OPANA [Suspect]
     Indication: BACK PAIN
     Dosage: 5 MG;QD
     Dates: start: 20070813, end: 20070817
  3. CELEBREX [Concomitant]
  4. HYDROCHLOROTHIAZIDE [Concomitant]
  5. EFFEXOR [Concomitant]
  6. LAMICTAL [Concomitant]
  7. RITALIN [Concomitant]
  8. HYDROCODONE BITARTRATE [Concomitant]

REACTIONS (1)
  - HYPERSENSITIVITY [None]
